FAERS Safety Report 8046149-6 (Version None)
Quarter: 2012Q1

REPORT INFORMATION
  Report Type: 
  Country: None (occurrence: None)
  Receive Date: 20120113
  Receipt Date: 20120110
  Transmission Date: 20120608
  Serious: Yes (Hospitalization)
  Sender: FDA-Public Use
  Company Number: US-VERTEX PHARMACEUTICALS INC.-AE-2011-005369

PATIENT
  Sex: Male

DRUGS (6)
  1. GABAPENTIN [Concomitant]
  2. PEGASYS [Concomitant]
     Indication: HEPATITIS C
     Route: 058
     Dates: start: 20111101
  3. RIBAVIRIN [Concomitant]
     Indication: HEPATITIS C
     Route: 048
     Dates: start: 20111101
  4. IBUPROFEN (ADVIL) [Concomitant]
  5. INCIVEK [Suspect]
     Indication: HEPATITIS C
     Route: 048
     Dates: start: 20111101
  6. ASPIRIN [Concomitant]

REACTIONS (11)
  - NAUSEA [None]
  - BACK PAIN [None]
  - DIARRHOEA [None]
  - ANORECTAL DISCOMFORT [None]
  - NASAL CONGESTION [None]
  - ANAL PRURITUS [None]
  - CHOLELITHIASIS [None]
  - COUGH [None]
  - FATIGUE [None]
  - HAEMORRHOIDS [None]
  - RASH PRURITIC [None]
